FAERS Safety Report 5613003-6 (Version None)
Quarter: 2008Q1

REPORT INFORMATION
  Report Type: 
  Country: None (occurrence: None)
  Receive Date: 20080204
  Receipt Date: 20080125
  Transmission Date: 20080703
  Serious: Yes (Disabling)
  Sender: FDA-Public Use
  Company Number: JP-PFIZER INC-2007093223

PATIENT
  Age: 5 Year
  Sex: Male

DRUGS (2)
  1. GENOTROPIN [Suspect]
     Indication: GROWTH RETARDATION
     Route: 058
     Dates: start: 20030101, end: 20070101
  2. GENOTROPIN [Suspect]
     Route: 058

REACTIONS (1)
  - KAWASAKI'S DISEASE [None]
